FAERS Safety Report 6261086-5 (Version None)
Quarter: 2009Q3

REPORT INFORMATION
  Report Type: 
  Country: None (occurrence: None)
  Receive Date: 20090707
  Receipt Date: 20090626
  Transmission Date: 20100115
  Serious: Yes (Other)
  Sender: FDA-Public Use
  Company Number: 2009EN000198

PATIENT
  Age: 24 Year
  Sex: Female

DRUGS (2)
  1. ONCASPAR [Suspect]
     Indication: ACUTE LYMPHOCYTIC LEUKAEMIA
     Dosage: 5325 IU; X1
     Dates: start: 20090522, end: 20090522
  2. CHOLESTEROL- AND TRIGLYCERIDE REDUCERS [Suspect]
     Indication: HYPERCHOLESTEROLAEMIA

REACTIONS (1)
  - HEPATITIS [None]
